FAERS Safety Report 12089200 (Version 1)
Quarter: 2016Q1

REPORT INFORMATION
  Report Type: Spontaneous
  Country: US (occurrence: None)
  Receive Date: 20160217
  Receipt Date: 20160217
  Transmission Date: 20160526
  Serious: Yes (Other)
  Sender: FDA-Public Use
  Company Number: None

PATIENT
  Age: 47 Year
  Sex: Female
  Weight: 77.11 kg

DRUGS (10)
  1. TOPAMAX [Concomitant]
     Active Substance: TOPIRAMATE
  2. KIRKLAND SIGNATURE FISH OIL [Concomitant]
  3. KIRKLAND SIGNATURE DAILY MULTI VITAMIN AND MINERALS [Concomitant]
  4. NATURE^S BOUNTY B-12 [Concomitant]
  5. NITROFURANTOIN MONO-MCR 100 MG ALVOGEN INC [Suspect]
     Active Substance: NITROFURANTOIN MONOHYDRATE
     Indication: URINARY TRACT INFECTION
     Dosage: 10 PILLS TWICE DAILY TAKEN BY MOUTH
     Route: 048
     Dates: start: 20160210, end: 20160214
  6. KIRKLAND SIGNATURE ALLERGY ALLER-TEC [Concomitant]
  7. KIRKLAND SIGNATURE CALCIUM +D3 [Concomitant]
  8. KIRKLAND SIGNATURE D3 [Concomitant]
  9. PHENTERMINE. [Concomitant]
     Active Substance: PHENTERMINE
  10. TRUNATURE PREMIUM TURMERIC [Concomitant]

REACTIONS (5)
  - Fatigue [None]
  - Decreased appetite [None]
  - Drug hypersensitivity [None]
  - Nausea [None]
  - Pain [None]

NARRATIVE: CASE EVENT DATE: 20160215
